FAERS Safety Report 18728771 (Version 2)
Quarter: 2021Q2

REPORT INFORMATION
  Report Type: Spontaneous
  Country: US (occurrence: US)
  Receive Date: 20210112
  Receipt Date: 20210520
  Transmission Date: 20210717
  Serious: Yes (Other)
  Sender: FDA-Public Use
  Company Number: US-GLAXOSMITHKLINE-US2020GSK256241

PATIENT
  Sex: Female

DRUGS (102)
  1. RANITIDINE. [Suspect]
     Active Substance: RANITIDINE
     Dosage: 150 MG BOTH
     Route: 065
     Dates: start: 200806, end: 201901
  2. ZANTAC [Suspect]
     Active Substance: RANITIDINE HYDROCHLORIDE
     Dosage: UNK
  3. ZANTAC [Suspect]
     Active Substance: RANITIDINE HYDROCHLORIDE
     Dosage: UNK
  4. RANITIDINE CAPSULE [Suspect]
     Active Substance: RANITIDINE
     Dosage: 150 MG BOTH
     Route: 065
     Dates: start: 200806, end: 201901
  5. RANITIDINE CAPSULE [Suspect]
     Active Substance: RANITIDINE
     Dosage: 150 MG BOTH
     Route: 065
     Dates: start: 200806, end: 201901
  6. RANITIDINE. [Suspect]
     Active Substance: RANITIDINE
     Indication: DYSPEPSIA
     Dosage: 75 MG BOTH
     Route: 065
     Dates: start: 200806, end: 201901
  7. RANITIDINE. [Suspect]
     Active Substance: RANITIDINE
     Dosage: UNK
  8. RANITIDINE. [Suspect]
     Active Substance: RANITIDINE
     Dosage: 300 MG, WE
     Route: 065
     Dates: start: 200806, end: 201901
  9. RANITIDINE. [Suspect]
     Active Substance: RANITIDINE
     Dosage: UNK
  10. RANITIDINE HYDROCHLORIDE. [Suspect]
     Active Substance: RANITIDINE HYDROCHLORIDE
     Dosage: UNK
  11. ZANTAC [Suspect]
     Active Substance: RANITIDINE HYDROCHLORIDE
     Indication: GASTROOESOPHAGEAL REFLUX DISEASE
     Dosage: UNK UNK, QD
     Route: 065
     Dates: start: 199106, end: 200801
  12. ZANTAC [Suspect]
     Active Substance: RANITIDINE HYDROCHLORIDE
     Dosage: UNK
  13. ZANTAC [Suspect]
     Active Substance: RANITIDINE HYDROCHLORIDE
     Dosage: UNK
  14. ZANTAC [Suspect]
     Active Substance: RANITIDINE HYDROCHLORIDE
     Dosage: UNK
  15. ZANTAC [Suspect]
     Active Substance: RANITIDINE HYDROCHLORIDE
     Indication: DYSPEPSIA
     Dosage: 75 MG BOTH
     Route: 065
     Dates: start: 200806, end: 201901
  16. RANITIDINE. [Suspect]
     Active Substance: RANITIDINE
     Dosage: UNK
  17. RANITIDINE. [Suspect]
     Active Substance: RANITIDINE
     Dosage: UNK
  18. RANITIDINE. [Suspect]
     Active Substance: RANITIDINE
     Dosage: UNK
  19. RANITIDINE HYDROCHLORIDE. [Suspect]
     Active Substance: RANITIDINE HYDROCHLORIDE
     Indication: DYSPEPSIA
     Dosage: 25 MG/ML BOTH
     Route: 065
     Dates: start: 199106, end: 200801
  20. RANITIDINE HYDROCHLORIDE. [Suspect]
     Active Substance: RANITIDINE HYDROCHLORIDE
     Dosage: UNK
  21. ZANTAC [Suspect]
     Active Substance: RANITIDINE HYDROCHLORIDE
     Indication: EROSIVE OESOPHAGITIS
     Dosage: 75 MG BOTH
     Route: 065
     Dates: start: 200806, end: 201901
  22. ZANTAC [Suspect]
     Active Substance: RANITIDINE HYDROCHLORIDE
     Indication: GASTROOESOPHAGEAL REFLUX DISEASE
     Dosage: 150 MG BOTH
     Route: 065
     Dates: start: 200806, end: 201901
  23. ZANTAC [Suspect]
     Active Substance: RANITIDINE HYDROCHLORIDE
     Dosage: UNK
  24. ZANTAC [Suspect]
     Active Substance: RANITIDINE HYDROCHLORIDE
     Dosage: UNK
  25. ZANTAC [Suspect]
     Active Substance: RANITIDINE HYDROCHLORIDE
     Indication: DYSPEPSIA
     Dosage: 25 MG/ML BOTH
     Route: 065
     Dates: start: 199106, end: 200801
  26. RANITIDINE. [Suspect]
     Active Substance: RANITIDINE
     Indication: DYSPEPSIA
     Dosage: 150 MG BOTH
     Route: 065
     Dates: start: 200806, end: 201901
  27. RANITIDINE. [Suspect]
     Active Substance: RANITIDINE
     Indication: EROSIVE OESOPHAGITIS
     Dosage: 300 MG BOTH
     Route: 065
     Dates: start: 200806, end: 201901
  28. RANITIDINE. [Suspect]
     Active Substance: RANITIDINE
     Dosage: 300 MG, WE
     Route: 065
     Dates: start: 200806, end: 201901
  29. ZANTAC [Suspect]
     Active Substance: RANITIDINE HYDROCHLORIDE
     Dosage: UNK
  30. RANITIDINE CAPSULE [Suspect]
     Active Substance: RANITIDINE
     Indication: GASTROOESOPHAGEAL REFLUX DISEASE
     Dosage: UNK
  31. RANITIDINE CAPSULE [Suspect]
     Active Substance: RANITIDINE
     Dosage: 150 MG BOTH
     Route: 065
     Dates: start: 200806, end: 201901
  32. RANITIDINE. [Suspect]
     Active Substance: RANITIDINE
     Indication: GASTROOESOPHAGEAL REFLUX DISEASE
     Dosage: 75 MG BOTH
     Route: 065
     Dates: start: 200806, end: 201901
  33. RANITIDINE. [Suspect]
     Active Substance: RANITIDINE
     Indication: EROSIVE OESOPHAGITIS
     Dosage: 300 MG BOTH
     Route: 065
     Dates: start: 200806, end: 201901
  34. RANITIDINE. [Suspect]
     Active Substance: RANITIDINE
     Dosage: UNK
  35. RANITIDINE HYDROCHLORIDE. [Suspect]
     Active Substance: RANITIDINE HYDROCHLORIDE
     Dosage: UNK
  36. ZANTAC [Suspect]
     Active Substance: RANITIDINE HYDROCHLORIDE
     Indication: DYSPEPSIA
     Dosage: 150 MG BOTH
     Route: 065
     Dates: start: 200806, end: 201901
  37. ZANTAC [Suspect]
     Active Substance: RANITIDINE HYDROCHLORIDE
     Dosage: UNK
  38. ZANTAC [Suspect]
     Active Substance: RANITIDINE HYDROCHLORIDE
     Indication: GASTROOESOPHAGEAL REFLUX DISEASE
     Dosage: 75 MG BOTH
     Route: 065
     Dates: start: 200806, end: 201901
  39. ZANTAC [Suspect]
     Active Substance: RANITIDINE HYDROCHLORIDE
     Dosage: 300 MG, QD
     Route: 065
     Dates: start: 200806, end: 201901
  40. ZANTAC [Suspect]
     Active Substance: RANITIDINE HYDROCHLORIDE
     Dosage: 300 MG, QD
     Route: 065
     Dates: start: 200806, end: 201901
  41. RANITIDINE CAPSULE [Suspect]
     Active Substance: RANITIDINE
     Indication: DYSPEPSIA
     Dosage: 150 MG BOTH
     Route: 065
     Dates: start: 200806, end: 201901
  42. RANITIDINE CAPSULE [Suspect]
     Active Substance: RANITIDINE
     Dosage: 300 MG, WE
     Route: 065
     Dates: start: 200806, end: 201901
  43. RANITIDINE. [Suspect]
     Active Substance: RANITIDINE
     Indication: EROSIVE OESOPHAGITIS
     Dosage: 300 MG BOTH
     Route: 065
     Dates: start: 200806, end: 201901
  44. RANITIDINE. [Suspect]
     Active Substance: RANITIDINE
     Dosage: UNK
  45. RANITIDINE. [Suspect]
     Active Substance: RANITIDINE
     Indication: DYSPEPSIA
     Dosage: 75 MG BOTH
     Route: 065
     Dates: start: 200806, end: 201901
  46. RANITIDINE HYDROCHLORIDE. [Suspect]
     Active Substance: RANITIDINE HYDROCHLORIDE
     Indication: EROSIVE OESOPHAGITIS
     Dosage: 50 MG/ML BOTH
     Route: 065
     Dates: start: 199106, end: 200801
  47. ZANTAC [Suspect]
     Active Substance: RANITIDINE HYDROCHLORIDE
     Dosage: UNK
  48. ZANTAC [Suspect]
     Active Substance: RANITIDINE HYDROCHLORIDE
     Indication: EROSIVE OESOPHAGITIS
     Dosage: 50 MG/ML BOTH
     Route: 065
     Dates: start: 199106, end: 200801
  49. ZANTAC [Suspect]
     Active Substance: RANITIDINE HYDROCHLORIDE
     Dosage: UNK
  50. RANITIDINE. [Suspect]
     Active Substance: RANITIDINE
     Dosage: 150 MG BOTH
     Route: 065
     Dates: start: 200806, end: 201901
  51. RANITIDINE. [Suspect]
     Active Substance: RANITIDINE
     Dosage: 300 MG BOTH
     Route: 065
     Dates: start: 200806, end: 201901
  52. RANITIDINE. [Suspect]
     Active Substance: RANITIDINE
     Dosage: 75 MG BOTH
     Route: 065
     Dates: start: 200806, end: 201901
  53. ZANTAC [Suspect]
     Active Substance: RANITIDINE HYDROCHLORIDE
     Indication: DYSPEPSIA
     Dosage: 75 MG BOTH
     Route: 065
     Dates: start: 200806, end: 201901
  54. ZANTAC [Suspect]
     Active Substance: RANITIDINE HYDROCHLORIDE
     Indication: GASTROOESOPHAGEAL REFLUX DISEASE
     Dosage: 75 MG BOTH
     Route: 065
     Dates: start: 200806, end: 201901
  55. RANITIDINE CAPSULE [Suspect]
     Active Substance: RANITIDINE
     Indication: DYSPEPSIA
     Dosage: 75 MG BOTH
     Route: 065
     Dates: start: 200806, end: 201901
  56. RANITIDINE. [Suspect]
     Active Substance: RANITIDINE
     Indication: HYPERCHLORHYDRIA
     Dosage: 150 MG BOTH
     Route: 065
     Dates: start: 200806, end: 201901
  57. RANITIDINE HYDROCHLORIDE. [Suspect]
     Active Substance: RANITIDINE HYDROCHLORIDE
     Indication: DYSPEPSIA
     Dosage: 50 MG/ML BOTH
     Route: 065
     Dates: start: 199106, end: 200801
  58. RANITIDINE HYDROCHLORIDE. [Suspect]
     Active Substance: RANITIDINE HYDROCHLORIDE
     Dosage: UNK
  59. ZANTAC [Suspect]
     Active Substance: RANITIDINE HYDROCHLORIDE
     Indication: DYSPEPSIA
     Dosage: 75 MG BOTH
     Route: 065
     Dates: start: 200806, end: 201901
  60. ZANTAC [Suspect]
     Active Substance: RANITIDINE HYDROCHLORIDE
     Indication: HYPERCHLORHYDRIA
     Dosage: UNK
  61. ZANTAC [Suspect]
     Active Substance: RANITIDINE HYDROCHLORIDE
     Dosage: UNK
  62. RANITIDINE. [Suspect]
     Active Substance: RANITIDINE
     Indication: DYSPEPSIA
     Dosage: 75 MG BOTH
     Route: 065
     Dates: start: 200806, end: 201901
  63. RANITIDINE. [Suspect]
     Active Substance: RANITIDINE
     Indication: GASTROOESOPHAGEAL REFLUX DISEASE
     Dosage: UNK
  64. ZANTAC [Suspect]
     Active Substance: RANITIDINE HYDROCHLORIDE
     Indication: DYSPEPSIA
     Dosage: 150 MG BOTH
     Route: 065
     Dates: start: 200806, end: 201901
  65. ZANTAC [Suspect]
     Active Substance: RANITIDINE HYDROCHLORIDE
     Dosage: UNK
  66. RANITIDINE CAPSULE [Suspect]
     Active Substance: RANITIDINE
     Indication: EROSIVE OESOPHAGITIS
     Dosage: 300 MG BOTH
     Route: 065
     Dates: start: 200806, end: 201901
  67. RANITIDINE CAPSULE [Suspect]
     Active Substance: RANITIDINE
     Indication: HYPERCHLORHYDRIA
     Dosage: 75 MG BOTH
     Route: 065
     Dates: start: 200806, end: 201901
  68. RANITIDINE CAPSULE [Suspect]
     Active Substance: RANITIDINE
     Dosage: 75 MG BOTH
     Route: 065
     Dates: start: 200806, end: 201901
  69. RANITIDINE. [Suspect]
     Active Substance: RANITIDINE
     Dosage: 300 MG, WE
     Route: 065
     Dates: start: 200806, end: 201901
  70. RANITIDINE. [Suspect]
     Active Substance: RANITIDINE
     Dosage: UNK
  71. RANITIDINE. [Suspect]
     Active Substance: RANITIDINE
     Dosage: UNK
  72. RANITIDINE. [Suspect]
     Active Substance: RANITIDINE
     Dosage: UNK
  73. RANITIDINE. [Suspect]
     Active Substance: RANITIDINE
     Dosage: UNK
  74. RANITIDINE HYDROCHLORIDE. [Suspect]
     Active Substance: RANITIDINE HYDROCHLORIDE
     Indication: GASTROOESOPHAGEAL REFLUX DISEASE
     Dosage: UNK UNK, QD
     Route: 065
     Dates: start: 199106, end: 200801
  75. RANITIDINE HYDROCHLORIDE. [Suspect]
     Active Substance: RANITIDINE HYDROCHLORIDE
     Dosage: UNK
  76. RANITIDINE HYDROCHLORIDE. [Suspect]
     Active Substance: RANITIDINE HYDROCHLORIDE
     Dosage: UNK
  77. ZANTAC [Suspect]
     Active Substance: RANITIDINE HYDROCHLORIDE
     Indication: HYPERCHLORHYDRIA
     Dosage: 300 MG, QD
     Route: 065
     Dates: start: 200806, end: 201901
  78. ZANTAC [Suspect]
     Active Substance: RANITIDINE HYDROCHLORIDE
     Dosage: UNK
  79. ZANTAC [Suspect]
     Active Substance: RANITIDINE HYDROCHLORIDE
     Indication: DYSPEPSIA
     Dosage: 50 MG/ML BOTH
     Route: 065
     Dates: start: 199106, end: 200801
  80. ZANTAC [Suspect]
     Active Substance: RANITIDINE HYDROCHLORIDE
     Dosage: UNK
  81. RANITIDINE. [Suspect]
     Active Substance: RANITIDINE
     Indication: HYPERCHLORHYDRIA
     Dosage: 75 MG BOTH
     Route: 065
     Dates: start: 200806, end: 201901
  82. ZANTAC [Suspect]
     Active Substance: RANITIDINE HYDROCHLORIDE
     Indication: EROSIVE OESOPHAGITIS
     Dosage: 300 MG BOTH
     Route: 065
     Dates: start: 200806, end: 201901
  83. ZANTAC [Suspect]
     Active Substance: RANITIDINE HYDROCHLORIDE
     Dosage: UNK
  84. ZANTAC [Suspect]
     Active Substance: RANITIDINE HYDROCHLORIDE
     Dosage: UNK
  85. RANITIDINE CAPSULE [Suspect]
     Active Substance: RANITIDINE
     Dosage: 75 MG BOTH
     Route: 065
     Dates: start: 200806, end: 201901
  86. RANITIDINE. [Suspect]
     Active Substance: RANITIDINE
     Indication: DYSPEPSIA
     Dosage: 150 MG BOTH
     Route: 065
     Dates: start: 200806, end: 201901
  87. RANITIDINE. [Suspect]
     Active Substance: RANITIDINE
     Dosage: UNK
  88. ZANTAC [Suspect]
     Active Substance: RANITIDINE HYDROCHLORIDE
     Dosage: UNK
  89. ZANTAC [Suspect]
     Active Substance: RANITIDINE HYDROCHLORIDE
     Dosage: UNK
  90. ZANTAC [Suspect]
     Active Substance: RANITIDINE HYDROCHLORIDE
     Indication: EROSIVE OESOPHAGITIS
     Dosage: 300 MG BOTH
     Route: 065
     Dates: start: 200806, end: 201901
  91. ZANTAC [Suspect]
     Active Substance: RANITIDINE HYDROCHLORIDE
     Indication: HYPERCHLORHYDRIA
     Dosage: 150 MG BOTH
     Route: 065
     Dates: start: 200806, end: 201901
  92. ZANTAC [Suspect]
     Active Substance: RANITIDINE HYDROCHLORIDE
     Dosage: UNK
  93. ZANTAC [Suspect]
     Active Substance: RANITIDINE HYDROCHLORIDE
     Indication: DYSPEPSIA
     Dosage: 150 MG BOTH
     Route: 065
     Dates: start: 200806, end: 201901
  94. ZANTAC [Suspect]
     Active Substance: RANITIDINE HYDROCHLORIDE
     Indication: HYPERCHLORHYDRIA
     Dosage: 150 MG BOTH
     Route: 065
     Dates: start: 200806, end: 201901
  95. RANITIDINE CAPSULE [Suspect]
     Active Substance: RANITIDINE
     Dosage: 300 MG BOTH
     Route: 065
     Dates: start: 200806, end: 201901
  96. RANITIDINE. [Suspect]
     Active Substance: RANITIDINE
     Indication: DYSPEPSIA
     Dosage: 150 MG BOTH
     Route: 065
     Dates: start: 200806, end: 201901
  97. RANITIDINE. [Suspect]
     Active Substance: RANITIDINE
     Indication: HYPERCHLORHYDRIA
     Dosage: 150 MG BOTH
     Route: 065
     Dates: start: 200806, end: 201901
  98. RANITIDINE. [Suspect]
     Active Substance: RANITIDINE
     Indication: GASTROOESOPHAGEAL REFLUX DISEASE
     Dosage: 75 MG BOTH
     Route: 065
     Dates: start: 200806, end: 201901
  99. RANITIDINE HYDROCHLORIDE. [Suspect]
     Active Substance: RANITIDINE HYDROCHLORIDE
     Indication: HYPERCHLORHYDRIA
     Dosage: UNK
  100. RANITIDINE HYDROCHLORIDE. [Suspect]
     Active Substance: RANITIDINE HYDROCHLORIDE
     Dosage: UNK
  101. ZANTAC [Suspect]
     Active Substance: RANITIDINE HYDROCHLORIDE
     Dosage: UNK
  102. ZANTAC [Suspect]
     Active Substance: RANITIDINE HYDROCHLORIDE
     Dosage: UNK

REACTIONS (1)
  - Breast cancer [Unknown]
